FAERS Safety Report 4312583-0 (Version None)
Quarter: 2004Q1

REPORT INFORMATION
  Report Type: 
  Country: None (occurrence: None)
  Receive Date: 20040303
  Receipt Date: 20040223
  Transmission Date: 20041129
  Serious: Yes (Death)
  Sender: FDA-Public Use
  Company Number: USA-2004-0013288

PATIENT
  Age: 63 Year
  Sex: Female
  Weight: 70.7 kg

DRUGS (6)
  1. OXYCODONE HCL [Suspect]
  2. CARISOPRODOL [Suspect]
  3. MEPROBAMATE [Suspect]
  4. DOXEPIN (DOXEPIN) [Suspect]
  5. ALPRAZOLAM [Suspect]
  6. CAFFEINE (CAFFEINE) CAPSULE [Suspect]

REACTIONS (4)
  - ATHEROSCLEROSIS [None]
  - COMA [None]
  - DRUG LEVEL ABOVE THERAPEUTIC [None]
  - FEELING COLD [None]
